FAERS Safety Report 4421968-3 (Version None)
Quarter: 2004Q3

REPORT INFORMATION
  Report Type: 
  Country: None (occurrence: None)
  Receive Date: 20040805
  Receipt Date: 20040722
  Transmission Date: 20050211
  Serious: Yes (Death)
  Sender: FDA-Public Use
  Company Number: T02-USA-00632-01

PATIENT
  Sex: Male
  Weight: 0.805 kg

DRUGS (2)
  1. INFASURF PRESERVATIVE FREE [Suspect]
     Indication: RESPIRATORY DISTRESS
  2. SURVANTA [Suspect]
     Indication: RESPIRATORY DISTRESS
     Dosage: 1 UNK BID TRACH
     Route: 039
     Dates: start: 20020329, end: 20020329

REACTIONS (4)
  - BRADYCARDIA NEONATAL [None]
  - NEONATAL DISORDER [None]
  - PNEUMOTHORAX [None]
  - PREMATURE BABY [None]
